FAERS Safety Report 18277988 (Version 4)
Quarter: 2021Q2

REPORT INFORMATION
  Report Type: Spontaneous
  Country: GB (occurrence: GB)
  Receive Date: 20200917
  Receipt Date: 20210611
  Transmission Date: 20210717
  Serious: Yes (Death, Hospitalization, Other)
  Sender: FDA-Public Use
  Company Number: GB-MYLANLABS-2020M1078348

PATIENT
  Age: 80 Year
  Sex: Female

DRUGS (6)
  1. RANITIDINE. [Suspect]
     Active Substance: RANITIDINE
     Indication: PRODUCT USED FOR UNKNOWN INDICATION
     Dosage: UNK
  2. APIXABAN [Suspect]
     Active Substance: APIXABAN
     Indication: THROMBOSIS
     Dosage: UNK
     Route: 065
  3. RANITIDINE. [Suspect]
     Active Substance: RANITIDINE
     Indication: CHOLELITHOTOMY
     Dosage: UNK
     Route: 065
  4. RANITIDINE. [Suspect]
     Active Substance: RANITIDINE
     Indication: CHOLELITHIASIS
     Dosage: 2 DOSAGE FORM, QD
     Route: 048
     Dates: start: 201812
  5. RANITIDINE. [Suspect]
     Active Substance: RANITIDINE
     Dosage: 300 MILLIGRAM, QD, (150 MG, BID)
     Dates: start: 201812
  6. WARFARIN [Suspect]
     Active Substance: WARFARIN
     Indication: THROMBOSIS
     Dosage: UNK
     Route: 065

REACTIONS (9)
  - Condition aggravated [Unknown]
  - Malaise [Unknown]
  - Product use in unapproved indication [Unknown]
  - Intestinal obstruction [Unknown]
  - Vomiting [Unknown]
  - Hepatic failure [Fatal]
  - Weight decreased [Unknown]
  - Cholelithiasis [Fatal]
  - Diarrhoea [Unknown]

NARRATIVE: CASE EVENT DATE: 201905
